FAERS Safety Report 8778852 (Version 4)
Quarter: 2013Q2

REPORT INFORMATION
  Report Type: Spontaneous
  Country: US (occurrence: US)
  Receive Date: 20120703
  Receipt Date: 20120703
  Transmission Date: 20140414
  Serious: No
  Sender: FDA-Public Use
  Company Number: PHEH2011US011597

PATIENT
  Age: 52 Year
  Sex: Female

DRUGS (5)
  1. GILENYA [Suspect]
     Indication: MULTIPLE SCLEROSIS
     Dosage: 0.5 MG, QD
     Route: 048
     Dates: start: 201112
  2. BACLOFEN [Concomitant]
     Indication: MUSCLE SPASTICITY
  3. MAXALT [Concomitant]
     Indication: MIGRAINE
  4. TOPAMAX [Concomitant]
     Indication: MIGRAINE
  5. TIZANIDINE [Concomitant]
     Indication: MIGRAINE

REACTIONS (7)
  - Multiple sclerosis relapse [Recovered/Resolved]
  - Convulsion [Recovered/Resolved]
  - Abdominal pain upper [Recovered/Resolved]
  - Influenza like illness [Unknown]
  - Urinary tract infection [Recovered/Resolved]
  - Back pain [Unknown]
  - Abdominal pain upper [None]
